FAERS Safety Report 7453538-7 (Version None)
Quarter: 2011Q2

REPORT INFORMATION
  Report Type: 
  Country: None (occurrence: None)
  Receive Date: 20110502
  Receipt Date: 20110307
  Transmission Date: 20111010
  Serious: No
  Sender: FDA-Public Use
  Company Number: US-ASTRAZENECA-2011SE12397

PATIENT
  Age: 79 Year
  Sex: Female
  Weight: 42.6 kg

DRUGS (2)
  1. NEXIUM [Suspect]
     Indication: GASTROOESOPHAGEAL REFLUX DISEASE
     Route: 048
     Dates: start: 20080101
  2. DARVOCETTE [Concomitant]

REACTIONS (2)
  - BONE DENSITY DECREASED [None]
  - TOOTH DISORDER [None]
